FAERS Safety Report 25750092 (Version 1)
Quarter: 2025Q3

REPORT INFORMATION
  Report Type: Report from Study
  Country: US (occurrence: US)
  Receive Date: 20250902
  Receipt Date: 20250902
  Transmission Date: 20251021
  Serious: Yes (Hospitalization)
  Sender: BAYER HEALTHCARE PHARMACEUTICALS INC.
  Company Number: US-BAYER-2025A100723

PATIENT
  Age: 54 Year
  Sex: Female
  Weight: 73.469 kg

DRUGS (33)
  1. ADEMPAS [Suspect]
     Active Substance: RIOCIGUAT
     Indication: Pulmonary arterial hypertension
     Dates: start: 20201215
  2. ADEMPAS [Suspect]
     Active Substance: RIOCIGUAT
     Indication: Pulmonary arterial hypertension
     Dosage: 2.5 MG, TID
     Route: 048
  3. SPIRIVA RESPIMAT [Concomitant]
     Active Substance: TIOTROPIUM BROMIDE
  4. ATORVASTATIN CALCIUM [Concomitant]
     Active Substance: ATORVASTATIN CALCIUM
  5. FISH OIL [Concomitant]
     Active Substance: FISH OIL
  6. FUROSEMIDE [Concomitant]
     Active Substance: FUROSEMIDE
  7. ALBUTEROL\IPRATROPIUM [Concomitant]
     Active Substance: ALBUTEROL\IPRATROPIUM
  8. VITAMIN D3 [Concomitant]
     Active Substance: CHOLECALCIFEROL
  9. POTASSIUM CHLORIDE [Concomitant]
     Active Substance: POTASSIUM CHLORIDE
  10. ALBUTEROL SULFATE [Concomitant]
     Active Substance: ALBUTEROL SULFATE
  11. MINERALS\VITAMINS [Concomitant]
     Active Substance: MINERALS\VITAMINS
  12. FLUOXETINE HYDROCHLORIDE [Concomitant]
     Active Substance: FLUOXETINE HYDROCHLORIDE
  13. TREPROSTINIL [Concomitant]
     Active Substance: TREPROSTINIL
  14. SODIUM CHLORIDE [Concomitant]
     Active Substance: SODIUM CHLORIDE
  15. OPSUMIT [Concomitant]
     Active Substance: MACITENTAN
  16. MAGNESIUM [Concomitant]
     Active Substance: MAGNESIUM
  17. OFEV [Concomitant]
     Active Substance: NINTEDANIB
  18. HYDROXYCHLOROQUINE SULFATE [Concomitant]
     Active Substance: HYDROXYCHLOROQUINE SULFATE
  19. OMEPRAZOLE [Concomitant]
     Active Substance: OMEPRAZOLE
  20. OXYGEN [Concomitant]
     Active Substance: OXYGEN
  21. METFORMIN HYDROCHLORIDE [Concomitant]
     Active Substance: METFORMIN HYDROCHLORIDE
  22. PREDNISONE [Concomitant]
     Active Substance: PREDNISONE
  23. GABAPENTIN [Concomitant]
     Active Substance: GABAPENTIN
  24. BENZOYL PEROXIDE [Concomitant]
     Active Substance: BENZOYL PEROXIDE
  25. VITAMINS [Concomitant]
     Active Substance: VITAMINS
  26. MODERNA COVID-19 VACCINE [Concomitant]
     Active Substance: ELASOMERAN
  27. FAMOTIDINE [Concomitant]
     Active Substance: FAMOTIDINE
  28. LOPERAMIDE [Concomitant]
     Active Substance: LOPERAMIDE
  29. FERROUS SULFATE [Concomitant]
     Active Substance: FERROUS SULFATE
  30. REMODULIN [Concomitant]
     Active Substance: TREPROSTINIL
  31. ONDANSETRON HYDROCHLORIDE [Concomitant]
     Active Substance: ONDANSETRON HYDROCHLORIDE
  32. COSENTYX [Concomitant]
     Active Substance: SECUKINUMAB
  33. NORETHINDRONE [Concomitant]
     Active Substance: NORETHINDRONE

REACTIONS (3)
  - Dyspnoea [None]
  - Organ failure [None]
  - Therapy interrupted [None]

NARRATIVE: CASE EVENT DATE: 20250724
